FAERS Safety Report 6703259-0 (Version None)
Quarter: 2010Q2

REPORT INFORMATION
  Report Type: 
  Country: None (occurrence: None)
  Receive Date: 20100430
  Receipt Date: 20100422
  Transmission Date: 20101027
  Serious: Yes (Hospitalization)
  Sender: FDA-Public Use
  Company Number: BE-WYE-H14149110

PATIENT
  Sex: Female
  Weight: 90 kg

DRUGS (8)
  1. BOSUTINIB [Suspect]
     Indication: BREAST CANCER
     Route: 048
     Dates: start: 20100111, end: 20100308
  2. ALTIZIDE/SPIRONOLACTONE [Concomitant]
     Indication: HYPERTENSION
     Dosage: DOSE NOT PROVIED
     Route: 048
  3. DEXPANTHENOL [Concomitant]
     Indication: REFLUX OESOPHAGITIS
     Dosage: NOT PROVIDED
     Route: 065
     Dates: start: 20080101
  4. LYSOMUCIL [Concomitant]
     Indication: PROPHYLAXIS
     Dosage: DOSE NOT PROVIDED
     Route: 065
     Dates: start: 19950101
  5. ZALDIAR [Concomitant]
     Indication: PAIN
     Dosage: NOT PROVIDED
     Route: 065
     Dates: start: 20090101
  6. DAFALGAN [Concomitant]
     Indication: PAIN
     Dosage: NOT PROVIDED
     Route: 065
     Dates: start: 20090101
  7. EXEMESTANE [Suspect]
     Indication: BREAST CANCER
     Route: 048
     Dates: start: 20100111, end: 20100308
  8. BISOPROLOL FUMARATE [Concomitant]
     Dosage: DOSE NOT PROVIDED
     Route: 048
     Dates: start: 20070101

REACTIONS (1)
  - DIABETES MELLITUS [None]
